FAERS Safety Report 10199349 (Version 1)
Quarter: 2014Q2

REPORT INFORMATION
  Report Type: Spontaneous
  Country: DE (occurrence: DE)
  Receive Date: 20140527
  Receipt Date: 20140527
  Transmission Date: 20141212
  Serious: Yes (Congenital Anomaly)
  Sender: FDA-Public Use
  Company Number: DE-TEVA-482628GER

PATIENT
  Age: 1 Day
  Sex: Male

DRUGS (3)
  1. MTX [Suspect]
     Route: 064
  2. SULFASALAZIN [Suspect]
     Route: 064
  3. FOLSAN [Concomitant]
     Route: 064

REACTIONS (3)
  - Ventricular septal defect [Recovered/Resolved with Sequelae]
  - Renal fusion anomaly [Not Recovered/Not Resolved]
  - Pulmonary artery stenosis congenital [Recovered/Resolved]
